FAERS Safety Report 11490902 (Version 1)
Quarter: 2015Q3

REPORT INFORMATION
  Report Type: Spontaneous
  Country: US (occurrence: US)
  Receive Date: 20150910
  Receipt Date: 20150910
  Transmission Date: 20151125
  Serious: Yes (Hospitalization)
  Sender: FDA-Public Use
  Company Number: US-IPCA LABORATORIES LIMITED-IPC201507-000509

PATIENT
  Age: 73 Year
  Sex: Female

DRUGS (1)
  1. HYDROCHLOROTHIAZIDE 12.5 MG CAPSULES [Suspect]
     Active Substance: HYDROCHLOROTHIAZIDE

REACTIONS (5)
  - Blindness [Unknown]
  - Blood pressure increased [Unknown]
  - Hypokalaemia [Unknown]
  - Dizziness [Unknown]
  - Dehydration [Unknown]
